FAERS Safety Report 7141331-4 (Version None)
Quarter: 2010Q4

REPORT INFORMATION
  Report Type: 
  Country: None (occurrence: None)
  Receive Date: 20101203
  Receipt Date: 20101203
  Transmission Date: 20110411
  Serious: No
  Sender: FDA-Public Use
  Company Number: None

PATIENT
  Age: 33 Year
  Sex: Female

DRUGS (2)
  1. VANCOMYCIN [Suspect]
     Indication: OSTEOMYELITIS
     Dosage: 1500MG BID IV
     Route: 042
  2. TORADOL [Suspect]
     Indication: PAIN
     Dosage: 30GM Q6H IV
     Route: 042

REACTIONS (1)
  - RENAL TUBULAR DISORDER [None]
